FAERS Safety Report 24153303 (Version 9)
Quarter: 2025Q2

REPORT INFORMATION
  Report Type: Spontaneous
  Country: US (occurrence: US)
  Receive Date: 20240730
  Receipt Date: 20250404
  Transmission Date: 20250717
  Serious: Yes (Other)
  Sender: PFIZER
  Company Number: US-PFIZER INC-202400223324

PATIENT
  Age: 12 Year
  Sex: Female
  Weight: 43.09 kg

DRUGS (6)
  1. GENOTROPIN [Suspect]
     Active Substance: SOMATROPIN
     Indication: Growth hormone deficiency
     Route: 058
     Dates: start: 202311
  2. GENOTROPIN [Suspect]
     Active Substance: SOMATROPIN
     Indication: Hypopituitarism
     Dosage: 2 MG, 1X/DAY
     Route: 058
  3. GENOTROPIN [Suspect]
     Active Substance: SOMATROPIN
     Dosage: 6X/WK, THIS EQUALS 0.29 MG/KG/WK. DOSING IS BASED ON WEIGHT AND IGF-1 LEVELS
     Route: 058
     Dates: start: 20240208
  4. GENOTROPIN [Suspect]
     Active Substance: SOMATROPIN
     Dosage: 6X/WK, THIS EQUALS 0.29 MG/KG/WK. DOSING IS BASED ON WEIGHT AND IGF-1 LEVELS
     Route: 058
     Dates: start: 20240514
  5. GENOTROPIN [Suspect]
     Active Substance: SOMATROPIN
     Dosage: 6X/WK, THIS EQUALS 0.31MG/KG/WK. DOSING IS BASED ON WEIGHT AND IGF-1 LEVELS
     Route: 058
     Dates: start: 20240814
  6. GENOTROPIN [Suspect]
     Active Substance: SOMATROPIN
     Dosage: 6X/WK, THIS EQUALS 0.29 MG/KG/WK. DOSING IS BASED ON WEIGHT AND IGF-1 LEVELS
     Route: 058
     Dates: start: 20250108

REACTIONS (8)
  - Autism spectrum disorder [Unknown]
  - Product storage error [Unknown]
  - Drug dose omission by device [Unknown]
  - Product prescribing error [Unknown]
  - Device information output issue [Unknown]
  - Device leakage [Unknown]
  - Urinary tract infection [Unknown]
  - Headache [Unknown]

NARRATIVE: CASE EVENT DATE: 20240101
